FAERS Safety Report 8018549-1 (Version None)
Quarter: 2012Q1

REPORT INFORMATION
  Report Type: 
  Country: None (occurrence: None)
  Receive Date: 20120103
  Receipt Date: 20111226
  Transmission Date: 20120608
  Serious: Yes (Hospitalization, Other)
  Sender: FDA-Public Use
  Company Number: US-BAYER-2010-002481

PATIENT
  Age: 29 Year
  Sex: Female

DRUGS (2)
  1. YASMIN [Suspect]
     Dosage: UNK
     Dates: start: 20070301, end: 20070901
  2. YAZ [Suspect]
     Dosage: UNK
     Dates: start: 20070301, end: 20070901

REACTIONS (4)
  - GALLBLADDER NON-FUNCTIONING [None]
  - PAIN [None]
  - CHOLELITHIASIS [None]
  - GALLBLADDER INJURY [None]
